FAERS Safety Report 6000594-9 (Version None)
Quarter: 2008Q4

REPORT INFORMATION
  Report Type: 
  Country: None (occurrence: None)
  Receive Date: 20081215
  Receipt Date: 20081202
  Transmission Date: 20090506
  Serious: Yes (Death)
  Sender: FDA-Public Use
  Company Number: EC-ROCHE-600753

PATIENT
  Sex: Female

DRUGS (3)
  1. CAPECITABINE [Suspect]
     Indication: GASTRIC CANCER
     Dosage: FREQUENCY: DAILY
     Route: 048
     Dates: start: 20080717, end: 20080911
  2. PACLITAXEL [Concomitant]
     Indication: GASTRIC CANCER
     Route: 042
     Dates: start: 20080101, end: 20080601
  3. CARBOPLATIN [Concomitant]
     Indication: GASTRIC CANCER
     Dosage: STRENGTH: 11X5 AUC
     Route: 042
     Dates: start: 20080101, end: 20080601

REACTIONS (1)
  - DISEASE PROGRESSION [None]
